FAERS Safety Report 6068154-1 (Version None)
Quarter: 2009Q1

REPORT INFORMATION
  Report Type: 
  Country: None (occurrence: None)
  Receive Date: 20090206
  Receipt Date: 20090126
  Transmission Date: 20090719
  Serious: Yes (Other)
  Sender: FDA-Public Use
  Company Number: FR-PFIZER INC-2009162489

PATIENT

DRUGS (5)
  1. EXEMESTANE [Suspect]
     Dosage: 25 MG, 1X/DAY
     Route: 048
     Dates: start: 20060630, end: 20090122
  2. PENICILLAMINE [Concomitant]
     Dosage: UNK
     Route: 048
     Dates: start: 19750101
  3. PROPRANOLOL HYDROCHLORIDE [Concomitant]
     Dosage: UNK
     Route: 048
     Dates: start: 19770101
  4. CAPTOPRIL [Concomitant]
     Dosage: UNK
     Route: 048
     Dates: start: 19770101
  5. OMEPRAZOLE [Concomitant]
     Route: 048
     Dates: start: 20060708

REACTIONS (1)
  - TRANSIENT ISCHAEMIC ATTACK [None]
